FAERS Safety Report 4470065-X (Version None)
Quarter: 2004Q3

REPORT INFORMATION
  Report Type: 
  Country: None (occurrence: None)
  Receive Date: 20040910
  Receipt Date: 20040303
  Transmission Date: 20050211
  Serious: Yes (Hospitalization)
  Sender: FDA-Public Use
  Company Number: 360793

PATIENT
  Sex: Female

DRUGS (2)
  1. ROCALTROL [Suspect]
     Indication: MINERAL SUPPLEMENTATION
     Dosage: ORAL
     Route: 048
  2. CALCIUM CITRATE (CALCIUM CITRATE) [Suspect]
     Indication: MINERAL SUPPLEMENTATION
     Dosage: 1200 MG 2 PER DAY ORAL
     Route: 048
     Dates: start: 20040215

REACTIONS (1)
  - HYPERCALCAEMIA [None]
